FAERS Safety Report 6212047-3 (Version None)
Quarter: 2009Q2

REPORT INFORMATION
  Report Type: 
  Country: None (occurrence: None)
  Receive Date: 20090602
  Receipt Date: 20080817
  Transmission Date: 20091009
  Serious: Yes (Life-Threatening, Hospitalization)
  Sender: FDA-Public Use
  Company Number: DE-ELI_LILLY_AND_COMPANY-DE200808003171

PATIENT
  Age: 26 Year
  Sex: Male

DRUGS (3)
  1. ZYPREXA [Suspect]
     Indication: SCHIZOPHRENIA
     Dosage: 20 MG, DAILY (1/D)
     Route: 048
     Dates: start: 20070301, end: 20070907
  2. RISPERDAL CONSTA [Concomitant]
     Dates: start: 20070401
  3. TRUXAL [Concomitant]
     Dates: start: 20070401

REACTIONS (1)
  - METABOLIC DISORDER [None]
